FAERS Safety Report 5068543-8 (Version None)
Quarter: 2006Q3

REPORT INFORMATION
  Report Type: 
  Country: None (occurrence: None)
  Receive Date: 20060802
  Receipt Date: 20051116
  Transmission Date: 20061208
  Serious: No
  Sender: FDA-Public Use
  Company Number: US-BRISTOL-MYERS SQUIBB COMPANY-13183520

PATIENT
  Age: 71 Year
  Sex: Female
  Weight: 84 kg

DRUGS (5)
  1. COUMADIN [Suspect]
     Indication: CARDIAC PACEMAKER INSERTION
     Dates: start: 20040101
  2. ASPIRIN [Concomitant]
  3. DIGOXIN [Concomitant]
  4. CRESTOR [Concomitant]
  5. CLONAZEPAM [Concomitant]

REACTIONS (1)
  - MICTURITION URGENCY [None]
